FAERS Safety Report 8011750-2 (Version None)
Quarter: 2011Q4

REPORT INFORMATION
  Report Type: 
  Country: None (occurrence: None)
  Receive Date: 20111228
  Receipt Date: 20111221
  Transmission Date: 20120403
  Serious: Yes (Hospitalization)
  Sender: FDA-Public Use
  Company Number: JP-ABBOTT-11P-087-0879892-00

PATIENT
  Sex: Female

DRUGS (7)
  1. ETODOLAC [Concomitant]
     Indication: RHEUMATOID ARTHRITIS
     Route: 048
     Dates: start: 20040317, end: 20111122
  2. RHEUMATREX [Suspect]
     Indication: RHEUMATOID ARTHRITIS
     Dosage: 1-2 MG
     Route: 048
     Dates: start: 20040317, end: 20111121
  3. METHOTREXATE [Concomitant]
     Dosage: 1-2 MG FOUR TIME/WEEK
     Dates: start: 20111211
  4. HUMIRA [Suspect]
     Indication: RHEUMATOID ARTHRITIS
     Route: 058
     Dates: start: 20110826, end: 20111118
  5. METHOTREXATE [Concomitant]
     Indication: RHEUMATOID ARTHRITIS
     Dosage: 1-2 MG FOUR TIMES/WEEK
     Dates: start: 20040317, end: 20111121
  6. FOLIC ACID [Concomitant]
     Indication: RHEUMATOID ARTHRITIS
     Dosage: ONE DOSAGE FORM DAILY
     Route: 048
     Dates: start: 20040317, end: 20111121
  7. PREDNISOLONE [Suspect]
     Indication: RHEUMATOID ARTHRITIS
     Dosage: FOUR DOSAGE FORMS DAILY
     Route: 048
     Dates: start: 20040317, end: 20111122

REACTIONS (3)
  - INTERSTITIAL LUNG DISEASE [None]
  - CHEST X-RAY ABNORMAL [None]
  - PNEUMONIA [None]
